FAERS Safety Report 10242296 (Version 1)
Quarter: 2014Q2

REPORT INFORMATION
  Report Type: Spontaneous
  Country: RS (occurrence: RS)
  Receive Date: 20140617
  Receipt Date: 20140617
  Transmission Date: 20141212
  Serious: Yes (Death, Other)
  Sender: FDA-Public Use
  Company Number: RS-PFIZER INC-2014162456

PATIENT
  Age: 8 Decade
  Sex: Male

DRUGS (2)
  1. SUNITINIB MALATE [Suspect]
     Indication: METASTATIC RENAL CELL CARCINOMA
     Dosage: 50 MG, CYCLIC, 4/2
     Dates: start: 201202
  2. SUNITINIB MALATE [Suspect]
     Dosage: 37.5 MG, CYCLIC, 4/2

REACTIONS (4)
  - Arrhythmia [Fatal]
  - Hypertension [Recovering/Resolving]
  - Dysgeusia [Recovering/Resolving]
  - Palmar-plantar erythrodysaesthesia syndrome [Recovering/Resolving]
